FAERS Safety Report 6455267-5 (Version None)
Quarter: 2009Q4

REPORT INFORMATION
  Report Type: 
  Country: None (occurrence: None)
  Receive Date: 20091119
  Receipt Date: 20091109
  Transmission Date: 20100525
  Serious: Yes (Other)
  Sender: FDA-Public Use
  Company Number: 2009-04123

PATIENT
  Age: 69 Year
  Sex: Male

DRUGS (5)
  1. VELCADE [Suspect]
     Indication: MULTIPLE MYELOMA
     Dosage: 2.1 MG, INTRAVENOUS
     Route: 042
     Dates: start: 20090728, end: 20090807
  2. ACYCLOVIR [Concomitant]
  3. OMEPRAZOLE [Concomitant]
  4. ALLOPURINOL [Concomitant]
  5. DEXAMETHASONE TAB [Concomitant]

REACTIONS (2)
  - ATRIAL FIBRILLATION [None]
  - HYPOTENSION [None]
